FAERS Safety Report 10712372 (Version 4)
Quarter: 2015Q2

REPORT INFORMATION
  Report Type: Spontaneous
  Country: BR (occurrence: BR)
  Receive Date: 20150115
  Receipt Date: 20150526
  Transmission Date: 20150821
  Serious: Yes (Hospitalization, Other)
  Sender: FDA-Public Use
  Company Number: BR-PFIZER INC-2014175666

PATIENT
  Age: 49 Year
  Sex: Male
  Weight: 64 kg

DRUGS (6)
  1. RIVOTRIL [Concomitant]
     Active Substance: CLONAZEPAM
     Dosage: ONE UNIT (2 MG) DAILY (AT NIGHT)
  2. HALDOL [Concomitant]
     Active Substance: HALOPERIDOL
     Dosage: UNK, DAILY (AT NIGHT)
  3. PHENERGAN [Concomitant]
     Active Substance: PROMETHAZINE HYDROCHLORIDE
     Dosage: ONE UNIT (25 MG) DAILY (AT NIGHT)
  4. CODEIN [Concomitant]
     Active Substance: CODEINE
     Indication: HEADACHE
     Dosage: 60 MG ONCE OR TWICE A DAY
  5. SUTENT [Suspect]
     Active Substance: SUNITINIB MALATE
     Indication: RENAL CELL CARCINOMA
     Dosage: 50 MG, CYCLIC (4X2)
     Route: 048
     Dates: start: 20140220, end: 201412
  6. PARACETAMOL [Concomitant]
     Active Substance: ACETAMINOPHEN
     Dosage: 500 MG ONCE OR TWICE A DAY

REACTIONS (20)
  - Osteitis [Not Recovered/Not Resolved]
  - Disease progression [Not Recovered/Not Resolved]
  - Tremor [Not Recovered/Not Resolved]
  - Feeling abnormal [Not Recovered/Not Resolved]
  - Vomiting [Not Recovered/Not Resolved]
  - Fluid intake reduced [Not Recovered/Not Resolved]
  - Nausea [Not Recovered/Not Resolved]
  - Headache [Not Recovered/Not Resolved]
  - Platelet count decreased [Unknown]
  - Renal cell carcinoma [Not Recovered/Not Resolved]
  - Retching [Not Recovered/Not Resolved]
  - Renal impairment [Not Recovered/Not Resolved]
  - Swelling face [Not Recovered/Not Resolved]
  - Pain in extremity [Not Recovered/Not Resolved]
  - Eating disorder [Not Recovered/Not Resolved]
  - Anaemia [Not Recovered/Not Resolved]
  - Pallor [Not Recovered/Not Resolved]
  - Eye swelling [Not Recovered/Not Resolved]
  - Pain [Not Recovered/Not Resolved]
  - Nervous system disorder [Not Recovered/Not Resolved]

NARRATIVE: CASE EVENT DATE: 2014
